FAERS Safety Report 20621931 (Version 2)
Quarter: 2023Q1

REPORT INFORMATION
  Report Type: Spontaneous
  Country: CN (occurrence: CN)
  Receive Date: 20220322
  Receipt Date: 20230303
  Transmission Date: 20230418
  Serious: Yes (Hospitalization, Other)
  Sender: FDA-Public Use
  Company Number: CN-PFIZER INC-202200397477

PATIENT
  Age: 19 Month
  Sex: Female
  Weight: 10 kg

DRUGS (5)
  1. AZITHROMYCIN [Suspect]
     Active Substance: AZITHROMYCIN
     Indication: Pneumonia
     Dosage: 0.100 G, 1X/DAY
     Route: 048
     Dates: start: 20220306, end: 20220306
  2. AMBROXOL HYDROCHLORIDE [Suspect]
     Active Substance: AMBROXOL HYDROCHLORIDE
     Indication: Pneumonia
     Dosage: 2.500 ML, 2X/DAY
     Route: 048
     Dates: start: 20220306, end: 20220306
  3. CEFTRIAXONE SODIUM [Concomitant]
     Active Substance: CEFTRIAXONE SODIUM
     Indication: Pneumonia
     Dosage: 0.800 G, 1X/DAY
     Route: 041
     Dates: start: 20220306, end: 20220309
  4. CALAMINE/ZINC OXIDE [Concomitant]
     Indication: Rash
     Dosage: 2.000 ML, 3X/DAY
     Route: 061
     Dates: start: 20220306, end: 20220309
  5. DEXTROSE\SODIUM CHLORIDE [Concomitant]
     Active Substance: DEXTROSE\SODIUM CHLORIDE
     Indication: Vehicle solution use
     Dosage: 100.000 ML, 1X/DAY
     Route: 041
     Dates: start: 20220306, end: 20220309

REACTIONS (4)
  - Rash [Recovered/Resolved]
  - Auricular swelling [Recovered/Resolved]
  - Pruritus [Recovered/Resolved]
  - Erythema [Recovered/Resolved]

NARRATIVE: CASE EVENT DATE: 20220306
